FAERS Safety Report 9693515 (Version 1)
Quarter: 2013Q4

REPORT INFORMATION
  Report Type: Spontaneous
  Country: BR (occurrence: BR)
  Receive Date: 20131118
  Receipt Date: 20131118
  Transmission Date: 20140711
  Serious: Yes (Hospitalization)
  Sender: FDA-Public Use
  Company Number: BR-BRISTOL-MYERS SQUIBB COMPANY-19803592

PATIENT
  Age: 52 Year
  Sex: Female

DRUGS (7)
  1. GLIFAGE XR [Suspect]
     Indication: DIABETES MELLITUS
     Dates: start: 20130921
  2. INSULINE NPH [Concomitant]
     Dosage: IN MRNG
  3. INSULIN REGULAR [Concomitant]
     Dosage: AT NIGHT
  4. MONOCORDIL [Concomitant]
  5. AAS [Concomitant]
  6. CARVEDILOL [Concomitant]
  7. RIVOTRIL [Concomitant]

REACTIONS (3)
  - Heart rate increased [Not Recovered/Not Resolved]
  - Vertigo [Not Recovered/Not Resolved]
  - Cold sweat [Not Recovered/Not Resolved]
